FAERS Safety Report 10190460 (Version 1)
Quarter: 2014Q2

REPORT INFORMATION
  Report Type: Spontaneous
  Country: US (occurrence: US)
  Receive Date: 20140522
  Receipt Date: 20140522
  Transmission Date: 20141212
  Serious: No
  Sender: FDA-Public Use
  Company Number: US-SANOFI-AVENTIS-2013SA051573

PATIENT
  Age: 60 Year
  Sex: Male
  Weight: 79.83 kg

DRUGS (2)
  1. ELOXATIN [Suspect]
     Indication: COLON CANCER
     Route: 041
     Dates: start: 20130423
  2. ELOXATIN [Suspect]
     Indication: COLON CANCER
     Route: 041

REACTIONS (1)
  - Hiccups [Not Recovered/Not Resolved]
